FAERS Safety Report 9323317 (Version 2)
Quarter: 2013Q4

REPORT INFORMATION
  Report Type: Spontaneous
  Country: US (occurrence: US)
  Receive Date: 20130603
  Receipt Date: 20131126
  Transmission Date: 20140711
  Serious: Yes (Hospitalization)
  Sender: FDA-Public Use
  Company Number: US-B.I. PHARMACEUTICALS,INC./RIDGEFIELD-2013-BI-14919BP

PATIENT
  Age: 61 Year
  Sex: Female
  Weight: 68.95 kg

DRUGS (8)
  1. PRADAXA [Suspect]
     Indication: ATRIAL FIBRILLATION
     Dosage: 300 MG
     Dates: start: 20110606, end: 20110609
  2. GABAPENTIN [Concomitant]
     Dosage: 900 MG
  3. HYDROCHLOROTHIAZIDE [Concomitant]
     Dosage: 25 MG
  4. LISINOPRIL [Concomitant]
     Dosage: 20 MG
  5. METOPROLOL [Concomitant]
     Dosage: 50 MG
  6. NORCO [Concomitant]
  7. SIMVASTATIN [Concomitant]
     Dosage: 20 MG
  8. SOTALOL [Concomitant]
     Dosage: 180 MG

REACTIONS (3)
  - Gastrointestinal haemorrhage [Unknown]
  - Coagulopathy [Unknown]
  - Haemorrhagic anaemia [Unknown]
